FAERS Safety Report 6286363-3 (Version None)
Quarter: 2009Q3

REPORT INFORMATION
  Report Type: 
  Country: None (occurrence: None)
  Receive Date: 20090724
  Receipt Date: 20090714
  Transmission Date: 20100115
  Serious: Yes (Death)
  Sender: FDA-Public Use
  Company Number: 001262

PATIENT
  Age: 28 Year
  Sex: Female

DRUGS (2)
  1. LACOSAMIDE [Suspect]
     Indication: CONVULSION
     Dates: start: 20090601, end: 20090714
  2. ANTIEPILEPTICS [Concomitant]

REACTIONS (1)
  - SUDDEN DEATH [None]
